FAERS Safety Report 5747496-0 (Version None)
Quarter: 2008Q2

REPORT INFORMATION
  Report Type: 
  Country: None (occurrence: None)
  Receive Date: 20080523
  Receipt Date: 20080513
  Transmission Date: 20081010
  Serious: Yes (Hospitalization)
  Sender: FDA-Public Use
  Company Number: US-ROCHE-557341

PATIENT
  Age: 54 Year
  Sex: Female
  Weight: 77.8 kg

DRUGS (1)
  1. BONIVA [Suspect]
     Indication: DRUG USE FOR UNKNOWN INDICATION
     Route: 048

REACTIONS (7)
  - ACUTE PHASE REACTION [None]
  - ARTHRALGIA [None]
  - HYPOXIA [None]
  - MYALGIA [None]
  - PNEUMONIA [None]
  - PYREXIA [None]
  - TRANSAMINASES INCREASED [None]
